FAERS Safety Report 8603828-7 (Version None)
Quarter: 2012Q3

REPORT INFORMATION
  Report Type: 
  Country: None (occurrence: None)
  Receive Date: 20120818
  Receipt Date: 20120723
  Transmission Date: 20120928
  Serious: Yes (Hospitalization)
  Sender: FDA-Public Use
  Company Number: PHEH2012US013158

PATIENT
  Sex: Female

DRUGS (20)
  1. RECLAST [Suspect]
     Indication: OSTEOPOROSIS
     Dosage: UNK
     Route: 042
     Dates: start: 20110101
  2. ZOFRAN [Concomitant]
     Dosage: 4 MG, UNK
  3. ACETAMINOPHEN [Concomitant]
     Indication: BACK PAIN
     Dosage: 5/500
  4. MULTIPLE VITAMINS [Concomitant]
     Dosage: 1 DF, UNK
  5. PRILOSEC [Concomitant]
     Dosage: 20 MG, UNK
  6. MS CONTIN [Concomitant]
     Dosage: 15 MG, BID
  7. SYNTHROID [Concomitant]
     Dosage: 137 UG, UNK
  8. LISINOPRIL [Concomitant]
     Dosage: 10 MG, UNK
  9. HYDROCODONE [Concomitant]
     Dosage: 10/500
  10. LEVOTHYROXINE SODIUM [Concomitant]
     Dosage: 137 UG, UNK
  11. PRUNE JUICE [Concomitant]
  12. CARTIA XT [Concomitant]
     Dosage: 180 MG, UNK
  13. MIRALAX [Concomitant]
     Dosage: 17 G, UNK
  14. ASPIRIN [Concomitant]
     Dosage: 81 MG, UNK
  15. CLARITIN [Concomitant]
  16. COLACE [Concomitant]
     Dosage: 200 MG, BID
  17. LASIX [Concomitant]
     Dosage: 1 DF, UNK
  18. CARDIZEM [Concomitant]
  19. METOPROLOL TARTRATE [Concomitant]
     Dosage: 50 MG, BID
  20. ISOSORBIDE MONONITRATE [Concomitant]
     Dosage: 30 MG, UNK

REACTIONS (24)
  - NAUSEA [None]
  - CHEST PAIN [None]
  - HYPERTENSION [None]
  - ANGIOEDEMA [None]
  - LIP SWELLING [None]
  - COUGH [None]
  - RHINORRHOEA [None]
  - SECRETION DISCHARGE [None]
  - RASH PRURITIC [None]
  - ATRIAL FIBRILLATION [None]
  - HYPERVENTILATION [None]
  - HYPERSENSITIVITY [None]
  - URTICARIA [None]
  - FATIGUE [None]
  - SWOLLEN TONGUE [None]
  - BODY TEMPERATURE INCREASED [None]
  - DYSPHAGIA [None]
  - ANXIETY [None]
  - WHEEZING [None]
  - ARTHRITIS [None]
  - DYSPNOEA [None]
  - FEELING ABNORMAL [None]
  - PHARYNGEAL OEDEMA [None]
  - TACHYCARDIA [None]
